FAERS Safety Report 20586916 (Version 1)
Quarter: 2022Q1

REPORT INFORMATION
  Report Type: Spontaneous
  Country: CN (occurrence: CN)
  Receive Date: 20220314
  Receipt Date: 20220314
  Transmission Date: 20220424
  Serious: Yes (Hospitalization)
  Sender: FDA-Public Use
  Company Number: CN-SCIEGENP-2022SCLIT00181

PATIENT
  Age: 69 Year
  Sex: Male

DRUGS (6)
  1. ATORVASTATIN CALCIUM [Suspect]
     Active Substance: ATORVASTATIN CALCIUM
     Indication: Arteriosclerosis coronary artery
     Route: 048
  2. ATORVASTATIN CALCIUM [Suspect]
     Active Substance: ATORVASTATIN CALCIUM
     Indication: Ventricular extrasystoles
  3. METOPROLOL TARTRATE [Suspect]
     Active Substance: METOPROLOL TARTRATE
     Indication: Arteriosclerosis coronary artery
     Route: 048
  4. METOPROLOL TARTRATE [Suspect]
     Active Substance: METOPROLOL TARTRATE
     Indication: Ventricular extrasystoles
  5. ASPIRIN [Suspect]
     Active Substance: ASPIRIN
     Indication: Arteriosclerosis coronary artery
     Route: 048
  6. ASPIRIN [Suspect]
     Active Substance: ASPIRIN
     Indication: Ventricular extrasystoles

REACTIONS (1)
  - Drug ineffective [Unknown]
